FAERS Safety Report 20332226 (Version 3)
Quarter: 2022Q1

REPORT INFORMATION
  Report Type: Report from Study
  Country: US (occurrence: US)
  Receive Date: 20220113
  Receipt Date: 20220210
  Transmission Date: 20220423
  Serious: No
  Sender: FDA-Public Use
  Company Number: US-NOVARTISTESTPH-NVSC2022US006992

PATIENT
  Age: 30 Year
  Sex: Female

DRUGS (1)
  1. MAYZENT [Suspect]
     Active Substance: SIPONIMOD
     Indication: Multiple sclerosis
     Dosage: 2 MG, QD (TABLET)
     Route: 048
     Dates: start: 202105

REACTIONS (2)
  - Exposure to SARS-CoV-2 [Unknown]
  - Cough [Unknown]

NARRATIVE: CASE EVENT DATE: 20220111
